FAERS Safety Report 7964492-3 (Version None)
Quarter: 2011Q4

REPORT INFORMATION
  Report Type: 
  Country: None (occurrence: None)
  Receive Date: 20111208
  Receipt Date: 20111129
  Transmission Date: 20120403
  Serious: Yes (Hospitalization, Other)
  Sender: FDA-Public Use
  Company Number: US-US-EMD SERONO, INC.-7062842

PATIENT
  Sex: Female
  Weight: 68 kg

DRUGS (5)
  1. LEXAPRO [Concomitant]
     Indication: FEELING ABNORMAL
  2. LIPODINE [Concomitant]
     Indication: HYPERTENSION
  3. LIPITOR [Concomitant]
     Indication: BLOOD CHOLESTEROL INCREASED
  4. REBIF [Suspect]
     Indication: MULTIPLE SCLEROSIS
     Route: 058
     Dates: start: 20050821, end: 20110501
  5. SYNTHROID [Concomitant]
     Indication: HYPOTHYROIDISM

REACTIONS (3)
  - PEPTIC ULCER [None]
  - OBSTRUCTION GASTRIC [None]
  - POST GASTRIC SURGERY SYNDROME [None]
